FAERS Safety Report 24253253 (Version 1)
Quarter: 2024Q3

REPORT INFORMATION
  Report Type: Report from Study
  Country: US (occurrence: US)
  Receive Date: 20240827
  Receipt Date: 20240827
  Transmission Date: 20241017
  Serious: Yes (Other)
  Sender: MYLAN
  Company Number: US-MYLANLABS-2024M1078624

PATIENT
  Age: 57 Year
  Sex: Female

DRUGS (5)
  1. RIFAMPIN [Suspect]
     Active Substance: RIFAMPIN
     Indication: Hidradenitis
     Dosage: UNK
     Route: 048
  2. SPIRONOLACTONE [Suspect]
     Active Substance: SPIRONOLACTONE
     Indication: Hidradenitis
     Dosage: UNK
     Route: 048
  3. ADALIMUMAB [Suspect]
     Active Substance: ADALIMUMAB
     Indication: Hidradenitis
     Dosage: UNK
     Route: 048
  4. KENALOG [Suspect]
     Active Substance: TRIAMCINOLONE ACETONIDE
     Indication: Hidradenitis
     Dosage: UNK
     Route: 065
  5. CLINDAMYCIN [Suspect]
     Active Substance: CLINDAMYCIN
     Indication: Hidradenitis
     Dosage: UNK
     Route: 048

REACTIONS (2)
  - Treatment failure [Unknown]
  - Off label use [Unknown]
